FAERS Safety Report 8319033-8 (Version None)
Quarter: 2012Q2

REPORT INFORMATION
  Report Type: 
  Country: None (occurrence: None)
  Receive Date: 20120427
  Receipt Date: 20120418
  Transmission Date: 20120825
  Serious: Yes (Hospitalization)
  Sender: FDA-Public Use
  Company Number: US-ACTELION-A-US2012-62598

PATIENT

DRUGS (4)
  1. TRACLEER [Suspect]
     Indication: PULMONARY ARTERIAL HYPERTENSION
     Dosage: UNK
     Route: 048
     Dates: start: 20101201
  2. ADCIRCA [Concomitant]
  3. OXYGEN [Concomitant]
  4. TYVASO [Concomitant]

REACTIONS (6)
  - FLUID RETENTION [None]
  - SYNCOPE [None]
  - FALL [None]
  - INTESTINAL HAEMORRHAGE [None]
  - SMALL INTESTINAL PERFORATION [None]
  - ELECTROCAUTERISATION [None]
